FAERS Safety Report 5894827-7 (Version None)
Quarter: 2008Q3

REPORT INFORMATION
  Report Type: 
  Country: None (occurrence: None)
  Receive Date: 20080924
  Receipt Date: 20080916
  Transmission Date: 20090109
  Serious: Yes (Other)
  Sender: FDA-Public Use
  Company Number: US-ASTRAZENECA-2008UW19200

PATIENT
  Age: 73 Year
  Sex: Male
  Weight: 81.6 kg

DRUGS (7)
  1. CRESTOR [Suspect]
     Indication: BLOOD CHOLESTEROL INCREASED
     Route: 048
  2. NORVASC [Concomitant]
  3. ALTASE [Concomitant]
  4. COUMADIN [Concomitant]
  5. AMIODERONE [Concomitant]
  6. LENOXIN [Concomitant]
  7. PREVACAL [Concomitant]

REACTIONS (4)
  - CARDIAC PACEMAKER INSERTION [None]
  - CARDIOMYOPATHY [None]
  - FEELING ABNORMAL [None]
  - WEIGHT DECREASED [None]
